FAERS Safety Report 5838404-2 (Version None)
Quarter: 2008Q3

REPORT INFORMATION
  Report Type: 
  Country: None (occurrence: None)
  Receive Date: 20080806
  Receipt Date: 20080730
  Transmission Date: 20090109
  Serious: Yes (Hospitalization, Other)
  Sender: FDA-Public Use
  Company Number: TPA2008A01174

PATIENT
  Age: 71 Year
  Sex: Male
  Weight: 109.5437 kg

DRUGS (11)
  1. PIOGLITAZONE HCL [Suspect]
     Indication: CARDIOVASCULAR EVENT PROPHYLAXIS
     Dosage: 1 IN 1 D, PER ORAL
     Route: 048
     Dates: start: 20061010, end: 20080716
  2. ATENALOL (ATENOLOL) [Concomitant]
  3. LISINOPRIL [Concomitant]
  4. NEXIUM [Concomitant]
  5. WARFARIN SODIUM [Concomitant]
  6. FLUOXETINE [Concomitant]
  7. DOXAZOSIN (DOXAZOSIN) [Concomitant]
  8. CLONAZEPAM [Concomitant]
  9. FUROSEMIDE [Concomitant]
  10. IMVASTATIN (SIMVASTATIN) [Concomitant]
  11. ALLEGRA [Concomitant]

REACTIONS (16)
  - BRAIN NATRIURETIC PEPTIDE INCREASED [None]
  - CARDIAC FAILURE CONGESTIVE [None]
  - CHILLS [None]
  - CHRONIC OBSTRUCTIVE PULMONARY DISEASE [None]
  - CONDITION AGGRAVATED [None]
  - DYSPNOEA EXERTIONAL [None]
  - EJECTION FRACTION DECREASED [None]
  - LEFT VENTRICULAR HYPERTROPHY [None]
  - MALAISE [None]
  - METAPNEUMOVIRUS INFECTION [None]
  - PRODUCTIVE COUGH [None]
  - PULMONARY OEDEMA [None]
  - PYREXIA [None]
  - RESPIRATORY TRACT INFECTION [None]
  - SPUTUM DISCOLOURED [None]
  - WHEEZING [None]
